FAERS Safety Report 4523386-6 (Version None)
Quarter: 2004Q4

REPORT INFORMATION
  Report Type: 
  Country: None (occurrence: None)
  Receive Date: 20041208
  Receipt Date: 20041129
  Transmission Date: 20050328
  Serious: Yes (Death, Hospitalization, Other)
  Sender: FDA-Public Use
  Company Number: 2001-01-0827

PATIENT
  Age: 62 Year
  Sex: Male
  Weight: 72.1219 kg

DRUGS (17)
  1. ALBUTEROL [Suspect]
     Dosage: ORAL AER INH
     Route: 055
     Dates: start: 19981101, end: 20000401
  2. ALBUTEROL [Suspect]
  3. ALBUTEROL [Suspect]
  4. ALBUTEROL [Suspect]
  5. ALBUTEROL [Suspect]
  6. ALBUTEROL [Suspect]
  7. ALBUTEROL [Suspect]
  8. ZOCOR [Concomitant]
  9. PROCARDIA XL [Concomitant]
  10. SINGULAIR [Concomitant]
  11. THEOPHYLLINE [Concomitant]
  12. COLACE [Concomitant]
  13. TYLENOL (CAPLET) [Concomitant]
  14. ATROVENT [Concomitant]
  15. FLOVENT [Concomitant]
  16. AQUABID DM (GUAIFENESIN/DEXOMETHORPHAN) [Concomitant]
  17. LEVAQUIN [Concomitant]

REACTIONS (19)
  - AGE INDETERMINATE MYOCARDIAL INFARCTION [None]
  - ANGINA UNSTABLE [None]
  - BLOOD GLUCOSE INCREASED [None]
  - BLOOD PRESSURE INADEQUATELY CONTROLLED [None]
  - BRONCHITIS [None]
  - CHILLS [None]
  - CHRONIC OBSTRUCTIVE AIRWAYS DISEASE EXACERBATED [None]
  - CORONARY ARTERY DISEASE [None]
  - CYANOSIS [None]
  - DRUG INEFFECTIVE [None]
  - DYSPHAGIA [None]
  - EJECTION FRACTION DECREASED [None]
  - EPISTAXIS [None]
  - HAEMOPTYSIS [None]
  - HYPERHIDROSIS [None]
  - MALAISE [None]
  - MYOCARDIAL ISCHAEMIA [None]
  - PNEUMONIA [None]
  - TREMOR [None]
